FAERS Safety Report 6525806-4 (Version None)
Quarter: 2010Q1

REPORT INFORMATION
  Report Type: 
  Country: None (occurrence: None)
  Receive Date: 20100104
  Receipt Date: 20091230
  Transmission Date: 20100710
  Serious: Yes (Other)
  Sender: FDA-Public Use
  Company Number: A0837244A

PATIENT
  Age: 43 Year
  Sex: Female

DRUGS (2)
  1. VALTREX [Suspect]
     Dosage: 500MG PER DAY
     Route: 048
     Dates: start: 20060101
  2. MOTRIN [Concomitant]

REACTIONS (20)
  - ABDOMINAL DISTENSION [None]
  - ABDOMINAL PAIN [None]
  - ADNEXA UTERI PAIN [None]
  - DRUG ADMINISTRATION ERROR [None]
  - DYSMENORRHOEA [None]
  - ERUCTATION [None]
  - FREQUENT BOWEL MOVEMENTS [None]
  - GASTROOESOPHAGEAL REFLUX DISEASE [None]
  - HYPOAESTHESIA [None]
  - INFERTILITY [None]
  - MENSTRUATION IRREGULAR [None]
  - OEDEMA PERIPHERAL [None]
  - OROPHARYNGEAL PAIN [None]
  - PAIN [None]
  - POLLAKIURIA [None]
  - SWELLING FACE [None]
  - THIRST [None]
  - UTERINE LEIOMYOMA [None]
  - WEIGHT INCREASED [None]
  - WHITE BLOOD CELL COUNT ABNORMAL [None]
